FAERS Safety Report 6813575-X (Version None)
Quarter: 2010Q3

REPORT INFORMATION
  Report Type: 
  Country: None (occurrence: None)
  Receive Date: 20100701
  Receipt Date: 20100628
  Transmission Date: 20110219
  Serious: Yes (Other)
  Sender: FDA-Public Use
  Company Number: DE-GILEAD-2010-0029969

PATIENT
  Sex: Male
  Weight: 62 kg

DRUGS (5)
  1. ATRIPLA [Suspect]
     Indication: HIV INFECTION
     Route: 048
     Dates: start: 20080821
  2. FELODIPINE [Concomitant]
     Dates: start: 20040801
  3. HYDROCHLOROTHIAZIDE [Concomitant]
     Dates: start: 20040801
  4. BISOPROLOL FUMARATE [Concomitant]
     Dates: start: 20050701
  5. SIMVASTATIN [Concomitant]
     Dates: start: 20040801

REACTIONS (3)
  - ALOPECIA TOTALIS [None]
  - DERMATITIS EXFOLIATIVE [None]
  - PHOTOSENSITIVITY REACTION [None]
